FAERS Safety Report 13226137 (Version 3)
Quarter: 2019Q1

REPORT INFORMATION
  Report Type: Other
  Country: US (occurrence: US)
  Receive Date: 20170213
  Receipt Date: 20190126
  Transmission Date: 20190417
  Serious: No
  Sender: FDA-Public Use
  Company Number: US-ACORDA-ACO_130005_2016

PATIENT
  Sex: Female

DRUGS (3)
  1. TECFIDERA [Suspect]
     Active Substance: DIMETHYL FUMARATE
     Indication: PRODUCT USED FOR UNKNOWN INDICATION
     Dosage: UNK
     Route: 065
     Dates: end: 201701
  2. AMPYRA [Suspect]
     Active Substance: DALFAMPRIDINE
     Indication: GAIT DISTURBANCE
     Dosage: 10 MG, BID (Q12H)
     Route: 048
     Dates: start: 20140312, end: 201701
  3. AMPYRA [Suspect]
     Active Substance: DALFAMPRIDINE
     Dosage: 10 MG, BID
     Route: 048

REACTIONS (6)
  - Feeling abnormal [Recovered/Resolved]
  - Asthenia [Recovered/Resolved]
  - Balance disorder [Recovered/Resolved]
  - Hypoaesthesia [Recovered/Resolved]
  - Limb discomfort [Recovered/Resolved]
  - Muscle spasms [Recovered/Resolved]
